FAERS Safety Report 8793116 (Version 1)
Quarter: 2012Q4

REPORT INFORMATION
  Report Type: Report from Study
  Country: CA (occurrence: CA)
  Receive Date: 20120917
  Receipt Date: 20120917
  Transmission Date: 20130627
  Serious: Yes (Life-Threatening, Other)
  Sender: FDA-Public Use
  Company Number: CA-ROCHE-1122341

PATIENT
  Age: 70 Year
  Sex: Female
  Weight: 89.4 kg

DRUGS (7)
  1. MABTHERA [Suspect]
     Indication: RHEUMATOID ARTHRITIS
     Route: 042
     Dates: start: 20110209, end: 20110329
  2. LOSEC (CANADA) [Concomitant]
  3. CELEXA [Concomitant]
  4. VALTREX [Concomitant]
  5. SALBUTAMOL [Concomitant]
     Route: 065
  6. REFRESH ENDURA [Concomitant]
     Route: 047
  7. TYLENOL [Concomitant]

REACTIONS (7)
  - Obliterative bronchiolitis [Not Recovered/Not Resolved]
  - Infusion related reaction [Unknown]
  - Nausea [Unknown]
  - Fatigue [Unknown]
  - Flushing [Unknown]
  - Headache [Unknown]
  - Lymphadenopathy [Unknown]
